FAERS Safety Report 17080260 (Version 1)
Quarter: 2019Q4

REPORT INFORMATION
  Report Type: Spontaneous
  Country: NL (occurrence: NL)
  Receive Date: 20191127
  Receipt Date: 20191127
  Transmission Date: 20200122
  Serious: Yes (Congenital Anomaly)
  Sender: FDA-Public Use
  Company Number: NL-TEVA-2019-NL-1141879

PATIENT
  Sex: Female
  Weight: 1 kg

DRUGS (1)
  1. CARBAMAZEPINE TABLET MET GEREGULEERDE AFGIFTE, 200 MG (MILLIGRAM) [Suspect]
     Active Substance: CARBAMAZEPINE
     Indication: EPILEPSY
     Dosage: 500 MG, 2X PER DAY 2.5 PIECES

REACTIONS (2)
  - Maternal exposure during pregnancy [Unknown]
  - Syndactyly [Not Recovered/Not Resolved]
